FAERS Safety Report 9807712 (Version 3)
Quarter: 2014Q3

REPORT INFORMATION
  Report Type: Report from Study
  Country: US (occurrence: US)
  Receive Date: 20140110
  Receipt Date: 20140926
  Transmission Date: 20150326
  Serious: Yes (Hospitalization, Other)
  Sender: FDA-Public Use
  Company Number: US-ALEXION-A201304463

PATIENT

DRUGS (2)
  1. SOLIRIS [Suspect]
     Active Substance: ECULIZUMAB
     Indication: PAROXYSMAL NOCTURNAL HAEMOGLOBINURIA
     Dosage: UNK
     Route: 042
     Dates: end: 20131010
  2. SOLIRIS [Suspect]
     Active Substance: ECULIZUMAB
     Dosage: UNK
     Route: 042
     Dates: start: 20131222

REACTIONS (7)
  - Dysarthria [Unknown]
  - Ocular icterus [Unknown]
  - Pain in extremity [Unknown]
  - Thrombosis [Unknown]
  - Chromaturia [Not Recovered/Not Resolved]
  - Pain [Unknown]
  - General physical health deterioration [Unknown]
